FAERS Safety Report 11549137 (Version 1)
Quarter: 2015Q3

REPORT INFORMATION
  Report Type: Spontaneous
  Country: US (occurrence: US)
  Receive Date: 20150924
  Receipt Date: 20150924
  Transmission Date: 20151125
  Serious: No
  Sender: FDA-Public Use
  Company Number: US-INCYTE CORPORATION-2015IN001681

PATIENT
  Age: 70 Year
  Sex: Male
  Weight: 74 kg

DRUGS (5)
  1. JAKAFI [Suspect]
     Active Substance: RUXOLITINIB
     Indication: MYELOFIBROSIS
     Dosage: 20 MG, BID
     Route: 048
     Dates: start: 20141020
  2. VITAMINS NOS [Concomitant]
     Active Substance: VITAMINS
     Dosage: ONCE DAILY
  3. GAS-X [Concomitant]
     Active Substance: DIMETHICONE
     Dosage: AS NEEDED
  4. IRON [Concomitant]
     Active Substance: IRON
     Dosage: ONCE DAILY
  5. DIUREX (HYDROCHLOROTHIAZIDE) [Concomitant]
     Active Substance: HYDROCHLOROTHIAZIDE
     Dosage: AS NEEDED

REACTIONS (1)
  - Inappropriate schedule of drug administration [Recovered/Resolved]

NARRATIVE: CASE EVENT DATE: 20150420
